FAERS Safety Report 9752370 (Version 3)
Quarter: 2014Q1

REPORT INFORMATION
  Report Type: Spontaneous
  Country: US (occurrence: US)
  Receive Date: 20131213
  Receipt Date: 20140129
  Transmission Date: 20141002
  Serious: Yes (Hospitalization)
  Sender: FDA-Public Use
  Company Number: US-PFIZER INC-2013355270

PATIENT
  Age: 66 Year
  Sex: Male

DRUGS (21)
  1. LOPID [Suspect]
     Dosage: 600 MG, TWICE DAILY
     Dates: end: 20131209
  2. SIMVASTATIN [Suspect]
     Dosage: 80 MG, ONCE DAILY
     Route: 048
     Dates: start: 201202, end: 20131209
  3. VICTOZA [Suspect]
     Indication: TYPE 2 DIABETES MELLITUS
     Dosage: 0.6 MG,X1 WK
     Route: 058
     Dates: start: 20131028, end: 201311
  4. VICTOZA [Suspect]
     Dosage: 1.2 MG X2 WK
     Route: 058
     Dates: start: 201311, end: 201311
  5. VICTOZA [Suspect]
     Dosage: 1.8 MG X1 WK
     Route: 058
     Dates: start: 201311
  6. FINASTERIDE [Concomitant]
     Dosage: 5 MG, ONCE DAILY
     Route: 048
  7. TERAZOSIN HYDROCHLORIDE [Concomitant]
     Dosage: 2 MG ONCE DAILY
     Route: 048
  8. GABAPENTIN [Concomitant]
     Dosage: 600 MG, 2X/DAY
     Route: 048
  9. EFFIENT [Concomitant]
     Dosage: 10 MG, 1X/DAY
     Route: 048
  10. MAXZIDE [Concomitant]
     Dosage: 37.5-25 MG ONCE DAILY/ HOLD
  11. METFORMIN HYDROCHLORIDE [Concomitant]
     Dosage: 1000 MG, 2X/DAY
     Route: 048
  12. LEVEMIR FLEXPEN [Concomitant]
     Dosage: 100 UNIT/ML SOLN 46 EACH PM
  13. NOVOLOG FLEXPEN [Concomitant]
     Dosage: 100 UNIT/ML SOLN SLIDING SCALE
  14. TYLENOL ARTHRITIS [Concomitant]
     Dosage: 2 DF, 2X/DAY
     Route: 048
  15. VITAMIN C [Concomitant]
     Dosage: ^500 MG 1 3 X PER WEEK^
  16. CENTRUM SILVER [Concomitant]
     Dosage: 1 DF, 1X/DAY
     Route: 048
  17. MIDRIN [Concomitant]
     Indication: HEADACHE
     Dosage: 1 DF EVERY 6 HOURS AS NEEDED
     Route: 048
  18. NITROLINGUAL-PUMPSPRAY [Concomitant]
     Dosage: 0.4 MG/SPRAY TL SOLN, (AS DIRECTED)
  19. ASPIR-LOW [Concomitant]
     Dosage: 81 MG, 1X/DAY (QAM)
     Route: 048
  20. OMEPRAZOLE [Concomitant]
     Dosage: 20MG ONCE DAILY (AM/HOLD)
     Route: 048
  21. LORAZEPAM [Concomitant]
     Dosage: 0.5 MG ONCE DAILY AS NEEDED
     Route: 048

REACTIONS (2)
  - Rhabdomyolysis [Recovered/Resolved]
  - Neuralgia [Recovered/Resolved]
